FAERS Safety Report 17355454 (Version 2)
Quarter: 2020Q1

REPORT INFORMATION
  Report Type: Spontaneous
  Country: CA (occurrence: CA)
  Receive Date: 20200131
  Receipt Date: 20200221
  Transmission Date: 20200409
  Serious: Yes (Other)
  Sender: FDA-Public Use
  Company Number: CA-REGENERON PHARMACEUTICALS, INC.-2019-74273

PATIENT

DRUGS (1)
  1. EYLEA [Suspect]
     Active Substance: AFLIBERCEPT
     Indication: NEOVASCULAR AGE-RELATED MACULAR DEGENERATION
     Dosage: UNK UNK, Q2MON. LOADING PHASE
     Dates: start: 20190731, end: 20191003

REACTIONS (6)
  - Retinal exudates [Recovering/Resolving]
  - Retinal exudates [Recovering/Resolving]
  - Multiple use of single-use product [Unknown]
  - Ophthalmic herpes simplex [Recovered/Resolved]
  - Blindness unilateral [Recovered/Resolved]
  - Uveitis [Recovered/Resolved]

NARRATIVE: CASE EVENT DATE: 201910
